FAERS Safety Report 7926884-8 (Version None)
Quarter: 2011Q4

REPORT INFORMATION
  Report Type: 
  Country: None (occurrence: None)
  Receive Date: 20111118
  Receipt Date: 20111116
  Transmission Date: 20120403
  Serious: Yes (Congenital Anomaly, Other)
  Sender: FDA-Public Use
  Company Number: US-PFIZER INC-2011281022

PATIENT
  Sex: Male

DRUGS (2)
  1. ZOLOFT [Suspect]
     Indication: DEPRESSION
     Dosage: UNK
     Route: 064
     Dates: start: 20100701, end: 20110101
  2. ZOLOFT [Suspect]
     Indication: ANXIETY

REACTIONS (4)
  - HYDROCEPHALUS [None]
  - MATERNAL EXPOSURE TIMING UNSPECIFIED [None]
  - SPINA BIFIDA [None]
  - NEURAL TUBE DEFECT [None]
